APPROVED DRUG PRODUCT: POMALIDOMIDE
Active Ingredient: POMALIDOMIDE
Strength: 3MG
Dosage Form/Route: CAPSULE;ORAL
Application: A209956 | Product #003 | TE Code: AB
Applicant: TEVA PHARMACEUTICALS USA INC
Approved: May 4, 2022 | RLD: No | RS: No | Type: RX